FAERS Safety Report 13686581 (Version 1)
Quarter: 2017Q2

REPORT INFORMATION
  Report Type: Spontaneous
  Country: JP (occurrence: JP)
  Receive Date: 20170623
  Receipt Date: 20170623
  Transmission Date: 20170830
  Serious: Yes (Death, Hospitalization)
  Sender: FDA-Public Use
  Company Number: PHJP2016JP004577

PATIENT
  Age: 68 Year
  Sex: Male

DRUGS (1)
  1. VOTRIENT [Suspect]
     Active Substance: PAZOPANIB HYDROCHLORIDE
     Indication: RENAL CELL CARCINOMA
     Dosage: 800 MG, QD
     Route: 048
     Dates: start: 20140703, end: 20150406

REACTIONS (8)
  - Metastases to lung [Fatal]
  - Malignant neoplasm progression [Fatal]
  - Tumour invasion [Fatal]
  - Metastases to liver [Fatal]
  - Gastrointestinal haemorrhage [Recovering/Resolving]
  - Renal cell carcinoma [Fatal]
  - Diarrhoea [Recovering/Resolving]
  - Metastases to central nervous system [Fatal]

NARRATIVE: CASE EVENT DATE: 20150406
